FAERS Safety Report 7095085-0 (Version None)
Quarter: 2010Q4

REPORT INFORMATION
  Report Type: 
  Country: None (occurrence: None)
  Receive Date: 20101111
  Receipt Date: 20101105
  Transmission Date: 20110411
  Serious: No
  Sender: FDA-Public Use
  Company Number: US-BIOGENIDEC-2010BI039070

PATIENT
  Age: 58 Year
  Sex: Female

DRUGS (3)
  1. TYSABRI [Suspect]
     Indication: MULTIPLE SCLEROSIS
     Route: 042
     Dates: start: 20090610
  2. TYSABRI [Suspect]
     Route: 042
     Dates: start: 20080421, end: 20090506
  3. AVONEX [Concomitant]
     Indication: MULTIPLE SCLEROSIS
     Route: 030
     Dates: start: 20070319

REACTIONS (3)
  - DRUG INEFFECTIVE [None]
  - PAIN [None]
  - SECONDARY PROGRESSIVE MULTIPLE SCLEROSIS [None]
